FAERS Safety Report 21910508 (Version 1)
Quarter: 2023Q1

REPORT INFORMATION
  Report Type: Spontaneous
  Country: US (occurrence: US)
  Receive Date: 20230125
  Receipt Date: 20230125
  Transmission Date: 20230418
  Serious: No
  Sender: FDA-Public Use
  Company Number: US-ALLERGAN-2211917US

PATIENT
  Sex: Female

DRUGS (3)
  1. BOTOX [Suspect]
     Active Substance: ONABOTULINUMTOXINA
     Indication: Product used for unknown indication
     Dosage: UNK UNK, SINGLE
     Dates: start: 20220226, end: 20220226
  2. DUPIXENT [Suspect]
     Active Substance: DUPILUMAB
     Indication: Dermatitis atopic
     Dosage: 300 MG, Q2WEEKS
     Route: 058
     Dates: start: 20211001
  3. DUPIXENT [Suspect]
     Active Substance: DUPILUMAB
     Dosage: 600 MG, SINGLE
     Route: 058
     Dates: start: 20210917, end: 20210917

REACTIONS (6)
  - COVID-19 [Unknown]
  - Gastrointestinal disorder [Unknown]
  - Photophobia [Unknown]
  - Eye irritation [Unknown]
  - Injection site urticaria [Unknown]
  - Injection site reaction [Unknown]
